FAERS Safety Report 13574698 (Version 1)
Quarter: 2017Q2

REPORT INFORMATION
  Report Type: Report from Study
  Country: US (occurrence: US)
  Receive Date: 20170523
  Receipt Date: 20170523
  Transmission Date: 20170830
  Serious: Yes (Hospitalization)
  Sender: FDA-Public Use
  Company Number: US-ACTELION-A-US2016-147195

PATIENT
  Age: 74 Year
  Sex: Female
  Weight: 63.95 kg

DRUGS (23)
  1. LEVOTHYROXINE. [Concomitant]
     Active Substance: LEVOTHYROXINE
  2. SPIRONOLACTONE. [Concomitant]
     Active Substance: SPIRONOLACTONE
  3. UPTRAVI [Suspect]
     Active Substance: SELEXIPAG
     Dosage: 400 MCG, BID
     Route: 048
     Dates: start: 20161125
  4. OPSUMIT [Suspect]
     Active Substance: MACITENTAN
     Indication: PULMONARY ARTERIAL HYPERTENSION
     Dosage: 10 MG, QD
     Route: 048
     Dates: start: 20141219
  5. ADEMPAS [Suspect]
     Active Substance: RIOCIGUAT
     Indication: PRODUCT USED FOR UNKNOWN INDICATION
     Route: 065
  6. FLUTICASONE. [Concomitant]
     Active Substance: FLUTICASONE
  7. SOTALOL. [Concomitant]
     Active Substance: SOTALOL
  8. XARELTO [Concomitant]
     Active Substance: RIVAROXABAN
  9. METOPROLOL. [Concomitant]
     Active Substance: METOPROLOL
  10. ALLOPURINOL. [Concomitant]
     Active Substance: ALLOPURINOL
  11. FUROSEMIDE. [Concomitant]
     Active Substance: FUROSEMIDE
  12. OLOPATADINE. [Concomitant]
     Active Substance: OLOPATADINE
  13. VENTOLIN [Concomitant]
     Active Substance: ALBUTEROL SULFATE
  14. UPTRAVI [Suspect]
     Active Substance: SELEXIPAG
     Dosage: UNK
     Route: 048
  15. LISINOPRIL. [Concomitant]
     Active Substance: LISINOPRIL
  16. ONGLYZA [Concomitant]
     Active Substance: SAXAGLIPTIN HYDROCHLORIDE
  17. TRAMADOL. [Concomitant]
     Active Substance: TRAMADOL
  18. SILDENAFIL. [Concomitant]
     Active Substance: SILDENAFIL
  19. KCL [Concomitant]
     Active Substance: POTASSIUM CHLORIDE
  20. LORAZEPAM. [Concomitant]
     Active Substance: LORAZEPAM
  21. UPTRAVI [Suspect]
     Active Substance: SELEXIPAG
     Indication: PULMONARY ARTERIAL HYPERTENSION
     Dosage: 800 MCG, BID
     Route: 048
  22. UPTRAVI [Suspect]
     Active Substance: SELEXIPAG
     Dosage: 600 MCG, BID
     Route: 048
  23. ADCIRCA [Concomitant]
     Active Substance: TADALAFIL

REACTIONS (8)
  - Adverse drug reaction [Recovered/Resolved]
  - Diarrhoea [Unknown]
  - Feeling abnormal [Unknown]
  - Dehydration [Unknown]
  - Headache [Recovering/Resolving]
  - Hyponatraemia [Unknown]
  - Malaise [Unknown]
  - Animal bite [Unknown]

NARRATIVE: CASE EVENT DATE: 20170426
